FAERS Safety Report 9093335 (Version 1)
Quarter: 2013Q1

REPORT INFORMATION
  Report Type: Report from Study
  Country: US (occurrence: US)
  Receive Date: 20130131
  Receipt Date: 20130131
  Transmission Date: 20140127
  Serious: No
  Sender: FDA-Public Use
  Company Number: US-ABBOTT-12P-163-1002829-00

PATIENT
  Sex: Female
  Weight: 59.02 kg

DRUGS (8)
  1. HUMIRA [Suspect]
     Indication: CROHN^S DISEASE
     Route: 058
     Dates: start: 201206, end: 20121019
  2. ASACOL [Concomitant]
     Indication: CROHN^S DISEASE
  3. LYRICA [Concomitant]
     Indication: FIBROMYALGIA
  4. SAVELLA [Concomitant]
     Indication: FIBROMYALGIA
  5. NORCO [Concomitant]
     Indication: PAIN
  6. VITAMIN D [Concomitant]
     Indication: VITAMIN D DECREASED
  7. BYSTOLIC [Concomitant]
     Indication: HYPERTENSION
  8. LOSARTAN/HYDROCHLOORTHIAZIDE [Concomitant]
     Indication: HYPERTENSION

REACTIONS (5)
  - Crohn^s disease [Not Recovered/Not Resolved]
  - Diarrhoea [Not Recovered/Not Resolved]
  - Abdominal pain lower [Not Recovered/Not Resolved]
  - Abdominal pain [Not Recovered/Not Resolved]
  - Nausea [Not Recovered/Not Resolved]
